FAERS Safety Report 5281288-4 (Version None)
Quarter: 2007Q1

REPORT INFORMATION
  Report Type: 
  Country: None (occurrence: None)
  Receive Date: 20061221
  Receipt Date: 20061107
  Transmission Date: 20070707
  Serious: No
  Sender: FDA-Public Use
  Company Number: SP01022

PATIENT
  Age: 45 Year
  Sex: Male

DRUGS (1)
  1. XIFAXAN [Suspect]
     Dosage: 600 MG (3 IN 1 D), ORAL
     Route: 048
     Dates: start: 20061103

REACTIONS (2)
  - TONGUE DISCOLOURATION [None]
  - TONGUE DISORDER [None]
